FAERS Safety Report 12452809 (Version 1)
Quarter: 2016Q2

REPORT INFORMATION
  Report Type: Spontaneous
  Country: US (occurrence: US)
  Receive Date: 20160609
  Receipt Date: 20160609
  Transmission Date: 20160815
  Serious: Yes (Hospitalization)
  Sender: FDA-Public Use
  Company Number: US-MALLINCKRODT-T201602233

PATIENT
  Age: 74 Year
  Sex: Female

DRUGS (8)
  1. DRONABINOL. [Concomitant]
     Active Substance: DRONABINOL
     Route: 048
  2. ERGOCALCIFEROL. [Concomitant]
     Active Substance: ERGOCALCIFEROL
     Dosage: 50 000 UNIT CAPSULE WEEKLY
     Route: 048
  3. METOPROLOL. [Concomitant]
     Active Substance: METOPROLOL
     Dosage: XL 50 MG DAILY
     Route: 048
  4. VITAMIN B12 [Concomitant]
     Active Substance: CYANOCOBALAMIN
     Route: 051
  5. METHADONE [Concomitant]
     Active Substance: METHADONE HYDROCHLORIDE
     Dosage: 10 MG, TID
     Route: 048
  6. GABLOFEN [Suspect]
     Active Substance: BACLOFEN
     Indication: MUSCLE SPASTICITY
     Dosage: 125 MCG/DAY
     Route: 037
  7. LYRICA [Concomitant]
     Active Substance: PREGABALIN
     Dosage: 150 MG BID
     Route: 048
  8. HYDROMORPHONE [Concomitant]
     Active Substance: HYDROMORPHONE
     Dosage: 4 MG

REACTIONS (1)
  - Mental status changes [Unknown]

NARRATIVE: CASE EVENT DATE: 20160518
